FAERS Safety Report 6836544-2 (Version None)
Quarter: 2010Q3

REPORT INFORMATION
  Report Type: 
  Country: None (occurrence: None)
  Receive Date: 20100713
  Receipt Date: 20100702
  Transmission Date: 20110219
  Serious: Yes (Death, Other)
  Sender: FDA-Public Use
  Company Number: US-TEVA-240027USA

PATIENT
  Age: 82 Year
  Sex: Female

DRUGS (1)
  1. DANAZOL CAPSULE 50MG, 100MG, 200MG [Suspect]
     Route: 048

REACTIONS (5)
  - ALTERED STATE OF CONSCIOUSNESS [None]
  - PNEUMONIA HAEMOPHILUS [None]
  - RENAL FAILURE ACUTE [None]
  - RENAL IMPAIRMENT [None]
  - RESPIRATORY FAILURE [None]
